FAERS Safety Report 9856685 (Version 1)
Quarter: 2014Q1

REPORT INFORMATION
  Report Type: Spontaneous
  Country: US (occurrence: US)
  Receive Date: 20140130
  Receipt Date: 20140130
  Transmission Date: 20141002
  Serious: Yes (Hospitalization)
  Sender: FDA-Public Use
  Company Number: US-GLAXOSMITHKLINE-A1057868A

PATIENT
  Age: 74 Year
  Sex: Female

DRUGS (10)
  1. VOTRIENT [Suspect]
     Indication: RENAL CELL CARCINOMA
     Dosage: 400MG PER DAY
     Route: 048
     Dates: start: 20140103
  2. POTASSIUM [Concomitant]
  3. TORSEMIDE [Concomitant]
  4. LISINOPRIL [Concomitant]
  5. COREG [Concomitant]
  6. DIGOXIN [Concomitant]
  7. TRICOR [Concomitant]
  8. DICYCLOMINE [Concomitant]
  9. ZYRTEC [Concomitant]
  10. IMODIUM [Concomitant]

REACTIONS (5)
  - Diarrhoea [Unknown]
  - Blood pressure increased [Unknown]
  - Fluid overload [Unknown]
  - Local swelling [Unknown]
  - Joint swelling [Unknown]
